FAERS Safety Report 8802931 (Version 2)
Quarter: 2012Q4

REPORT INFORMATION
  Report Type: 
  Country: BR (occurrence: BR)
  Receive Date: 20120924
  Receipt Date: 20121004
  Transmission Date: 20130627
  Serious: Yes (Death, Hospitalization)
  Sender: FDA-Public Use
  Company Number: BR-PFIZER INC-2011308649

PATIENT
  Age: 23 Year
  Sex: Female
  Weight: 36 kg

DRUGS (3)
  1. SUTENT [Suspect]
     Indication: RENAL CANCER
     Dosage: 50 mg, 1x/day, 4 weeks on and 2 weeks off (cycle 4 to 2)
     Route: 048
     Dates: start: 20111215
  2. SUTENT [Suspect]
     Indication: RENAL CELL CARCINOMA
  3. INTERFERON [Concomitant]

REACTIONS (20)
  - Disease progression [Fatal]
  - Renal cancer [Fatal]
  - Abdominal pain lower [Recovering/Resolving]
  - Back pain [Unknown]
  - Oedema peripheral [Unknown]
  - Pain in extremity [Unknown]
  - Vomiting [Unknown]
  - Nausea [Unknown]
  - Hypothyroidism [Unknown]
  - Blood potassium increased [Unknown]
  - Decreased appetite [Unknown]
  - Second primary malignancy [Unknown]
  - Gastrointestinal carcinoma [Unknown]
  - Mucosal inflammation [Unknown]
  - Dry mouth [Unknown]
  - Glossodynia [Not Recovered/Not Resolved]
  - Nausea [Recovering/Resolving]
  - Vomiting [Recovering/Resolving]
  - Suture rupture [Unknown]
  - Dysgeusia [Recovering/Resolving]
